FAERS Safety Report 21989038 (Version 1)
Quarter: 2023Q1

REPORT INFORMATION
  Report Type: Report from Study
  Country: JP (occurrence: JP)
  Receive Date: 20230214
  Receipt Date: 20230214
  Transmission Date: 20230417
  Serious: Yes (Other)
  Sender: FDA-Public Use
  Company Number: JP-ABBVIE-22K-087-4517428-00

PATIENT
  Age: 25 Year
  Sex: Female

DRUGS (7)
  1. HUMIRA [Suspect]
     Active Substance: ADALIMUMAB
     Indication: Uveitis
     Route: 058
     Dates: start: 20220207, end: 20220905
  2. Lactomin, /old form/ [Concomitant]
     Indication: Diarrhoea
     Dosage: TIME INTERVAL: 0.33333333 DAYS: 6 TABLET
     Route: 048
     Dates: start: 20220802
  3. CEPHALEXIN [Concomitant]
     Active Substance: CEPHALEXIN
     Indication: Infection prophylaxis
     Dosage: TIME INTERVAL: 0.33333333 DAYS: 1500 MILLIGRAM
     Route: 048
     Dates: start: 20230130, end: 20230204
  4. GLUTAMINE\SODIUM GUALENATE [Concomitant]
     Active Substance: GLUTAMINE\SODIUM GUALENATE
     Indication: Abdominal discomfort
     Dosage: TIME INTERVAL: 0.33333333 DAYS: 3 TABLET
     Route: 048
     Dates: start: 20221226
  5. AMPICILLIN [Concomitant]
     Active Substance: AMPICILLIN
     Indication: Streptococcus test positive
     Dosage: FIRST: 2 G, LATER: 1 G EVERY 4 HOURS
     Route: 041
     Dates: start: 20230205
  6. MAGNESIUM OXIDE [Concomitant]
     Active Substance: MAGNESIUM OXIDE
     Indication: Constipation
     Dosage: TIME INTERVAL: 0.33333333 DAYS: MAXIMUM 1980 MG/DAY
     Route: 048
     Dates: start: 20221114
  7. SODIUM FERROUS CITRATE [Concomitant]
     Active Substance: SODIUM FERROUS CITRATE
     Indication: Anaemia
     Dosage: 100 MILLIGRAM
     Route: 048
     Dates: start: 20221128

REACTIONS (9)
  - Obstructed labour [Unknown]
  - Maternal exposure during pregnancy [Unknown]
  - Product administered at inappropriate site [Unknown]
  - Injection site swelling [Unknown]
  - Injection site haemorrhage [Recovered/Resolved]
  - Abdominal pain [Unknown]
  - Chlamydial infection [Unknown]
  - Diarrhoea [Unknown]
  - Live birth [Unknown]

NARRATIVE: CASE EVENT DATE: 20220610
